FAERS Safety Report 6375615-4 (Version None)
Quarter: 2009Q3

REPORT INFORMATION
  Report Type: 
  Country: None (occurrence: None)
  Receive Date: 20090924
  Receipt Date: 20090915
  Transmission Date: 20100115
  Serious: Yes (Hospitalization)
  Sender: FDA-Public Use
  Company Number: IE-AVENTIS-200920477GDDC

PATIENT
  Age: 74 Year
  Sex: Male

DRUGS (7)
  1. TAXOTERE [Suspect]
     Route: 042
     Dates: start: 20090821, end: 20090821
  2. CODE UNBROKEN [Suspect]
     Route: 048
     Dates: start: 20090403, end: 20090821
  3. PREDNISONE TAB [Suspect]
     Route: 048
     Dates: start: 20090403
  4. DEXAMETHASONE 4MG TAB [Suspect]
     Indication: PREMEDICATION
  5. ASPIRIN [Concomitant]
     Dosage: DOSE: UNK
  6. OXYCONTIN [Concomitant]
     Dosage: DOSE: UNK
  7. ZOTON [Concomitant]
     Dosage: DOSE: UNK

REACTIONS (3)
  - DEHYDRATION [None]
  - FATIGUE [None]
  - HYPONATRAEMIA [None]
